FAERS Safety Report 9082496 (Version 1)
Quarter: 2013Q1

REPORT INFORMATION
  Report Type: Report from Study
  Country: US (occurrence: US)
  Receive Date: 20130131
  Receipt Date: 20130131
  Transmission Date: 20140127
  Serious: No
  Sender: FDA-Public Use
  Company Number: US-ABBOTT-12P-163-0986435-00

PATIENT
  Sex: Male

DRUGS (4)
  1. HUMIRA [Suspect]
     Indication: PSORIATIC ARTHROPATHY
     Dates: start: 201207
  2. ASPIRIN [Concomitant]
     Indication: PRODUCT USED FOR UNKNOWN INDICATION
  3. SOME OTHER PILL [Concomitant]
     Indication: PRODUCT USED FOR UNKNOWN INDICATION
  4. ANTIHISTAMINES [Concomitant]
     Indication: SEASONAL ALLERGY

REACTIONS (3)
  - Somnolence [Not Recovered/Not Resolved]
  - Injection site bruising [Recovering/Resolving]
  - Spider vein [Recovering/Resolving]
